FAERS Safety Report 4887675-8 (Version None)
Quarter: 2006Q1

REPORT INFORMATION
  Report Type: 
  Country: None (occurrence: None)
  Receive Date: 20060119
  Receipt Date: 20060119
  Transmission Date: 20060701
  Serious: Yes (Hospitalization)
  Sender: FDA-Public Use
  Company Number: None

PATIENT
  Age: 26 Year
  Sex: Female
  Weight: 68.9467 kg

DRUGS (1)
  1. INDOMETHACIN [Suspect]
     Dosage: 25 MG PO Q 8 HR
     Route: 048

REACTIONS (6)
  - ABDOMINAL PAIN [None]
  - DIZZINESS [None]
  - DYSSTASIA [None]
  - FAECES DISCOLOURED [None]
  - NAUSEA [None]
  - VOMITING [None]
